FAERS Safety Report 5401177-1 (Version None)
Quarter: 2007Q3

REPORT INFORMATION
  Report Type: 
  Country: None (occurrence: None)
  Receive Date: 20070731
  Receipt Date: 20070724
  Transmission Date: 20080115
  Serious: Yes (Disabling, Other)
  Sender: FDA-Public Use
  Company Number: PHNU2007DE02630

PATIENT
  Age: 62 Year
  Sex: Female

DRUGS (2)
  1. ZOMETA [Suspect]
     Indication: OSTEOPOROSIS
     Dosage: 4 MG, UNK
     Route: 042
     Dates: start: 20040701
  2. CLINDAMYCIN HCL [Concomitant]
     Indication: OSTEITIS
     Route: 065
     Dates: start: 20070401

REACTIONS (7)
  - BONE DISORDER [None]
  - INFLAMMATION [None]
  - OSTEITIS [None]
  - OSTEONECROSIS [None]
  - PROSTHESIS USER [None]
  - TOOTH EXTRACTION [None]
  - X-RAY DENTAL [None]
